FAERS Safety Report 7081711-9 (Version None)
Quarter: 2010Q4

REPORT INFORMATION
  Report Type: 
  Country: None (occurrence: None)
  Receive Date: 20101103
  Receipt Date: 20101022
  Transmission Date: 20110411
  Serious: Yes (Disabling)
  Sender: FDA-Public Use
  Company Number: GB-ELI_LILLY_AND_COMPANY-GB201009003596

PATIENT
  Sex: Female
  Weight: 40.4 kg

DRUGS (2)
  1. FORTEO [Suspect]
     Dosage: 20 UG, UNKNOWN
     Route: 058
     Dates: start: 20090507, end: 20100501
  2. ADCAL D3 [Concomitant]
     Indication: OSTEOPOROSIS
     Dosage: UNK, UNKNOWN
     Route: 048

REACTIONS (3)
  - ABDOMINAL PAIN UPPER [None]
  - TOOTH DISORDER [None]
  - TOOTH LOSS [None]
